FAERS Safety Report 7224900-2 (Version None)
Quarter: 2011Q1

REPORT INFORMATION
  Report Type: 
  Country: None (occurrence: None)
  Receive Date: 20110113
  Receipt Date: 20110106
  Transmission Date: 20110831
  Serious: Yes (Death, Hospitalization)
  Sender: FDA-Public Use
  Company Number: NL-ROCHE-752020

PATIENT
  Sex: Female

DRUGS (4)
  1. AVASTIN [Suspect]
     Route: 042
     Dates: start: 20101118
  2. XELODA [Concomitant]
     Dosage: DAY: 01-14, BID
     Dates: start: 20100816
  3. CAPOX [Concomitant]
     Dates: start: 20100816
  4. OXALIPLATIN [Concomitant]
     Dates: start: 20100816

REACTIONS (2)
  - LARGE INTESTINE PERFORATION [None]
  - DEATH [None]
